FAERS Safety Report 11790411 (Version 1)
Quarter: 2015Q4

REPORT INFORMATION
  Report Type: Spontaneous
  Country: CN (occurrence: CN)
  Receive Date: 20151201
  Receipt Date: 20151201
  Transmission Date: 20160305
  Serious: Yes (Hospitalization)
  Sender: FDA-Public Use
  Company Number: CN-IPCA LABORATORIES LIMITED-IPC201511-000793

PATIENT
  Age: 80 Year
  Sex: Female
  Weight: 58 kg

DRUGS (6)
  1. WARFARIN [Suspect]
     Active Substance: WARFARIN
  2. ASPIRIN. [Suspect]
     Active Substance: ASPIRIN
  3. LOSARTAN/ HYDROCHLOROTHIAZIDE [Concomitant]
     Active Substance: HYDROCHLOROTHIAZIDE\LOSARTAN POTASSIUM
     Indication: HYPERTENSION
  4. ASPIRIN. [Suspect]
     Active Substance: ASPIRIN
  5. METOPROLOL [Concomitant]
     Active Substance: METOPROLOL
     Indication: HYPERTENSION
  6. ASPIRIN. [Suspect]
     Active Substance: ASPIRIN

REACTIONS (3)
  - Drug interaction [Unknown]
  - Haemoptysis [Recovered/Resolved]
  - International normalised ratio increased [Recovering/Resolving]
